FAERS Safety Report 6265727-8 (Version None)
Quarter: 2009Q3

REPORT INFORMATION
  Report Type: 
  Country: None (occurrence: None)
  Receive Date: 20090709
  Receipt Date: 20090709
  Transmission Date: 20100115
  Serious: Yes (Hospitalization)
  Sender: FDA-Public Use
  Company Number: None

PATIENT
  Sex: Female

DRUGS (11)
  1. SODIUM CITRATE [Suspect]
     Indication: ACIDOSIS
     Dosage: 16 GRAMS, DAILY, G-TUBE
     Route: 050
     Dates: start: 20090623, end: 20090702
  2. TOPICAL HYDROCORTISONE PRN [Concomitant]
  3. L-CARNITINE [Concomitant]
  4. ALBUTEROL [Concomitant]
  5. FLONASE [Concomitant]
  6. ATROVENT [Concomitant]
  7. SINGULAIR [Concomitant]
  8. ZANTAC [Concomitant]
  9. PREVACID [Concomitant]
  10. PULMOZYME [Concomitant]
  11. FLOVENT [Concomitant]

REACTIONS (12)
  - ATELECTASIS [None]
  - BACTERIAL INFECTION [None]
  - BLOOD CULTURE POSITIVE [None]
  - C-REACTIVE PROTEIN INCREASED [None]
  - DECREASED ACTIVITY [None]
  - DYSPHONIA [None]
  - MALAISE [None]
  - PARAINFLUENZAE VIRUS INFECTION [None]
  - PLEURAL EFFUSION [None]
  - PNEUMONIA [None]
  - PNEUMONIA BACTERIAL [None]
  - URINE KETONE BODY PRESENT [None]
